FAERS Safety Report 24131852 (Version 2)
Quarter: 2024Q4

REPORT INFORMATION
  Report Type: Spontaneous
  Country: JP (occurrence: JP)
  Receive Date: 20240724
  Receipt Date: 20241016
  Transmission Date: 20250115
  Serious: Yes (Hospitalization, Other)
  Sender: GILEAD
  Company Number: JP-GILEAD-2024-0681140

PATIENT
  Age: 6 Decade
  Sex: Female

DRUGS (2)
  1. VEKLURY [Suspect]
     Active Substance: REMDESIVIR
     Indication: COVID-19 pneumonia
     Dosage: UNK
     Route: 065
  2. PREDNISOLONE [Concomitant]
     Active Substance: PREDNISOLONE
     Indication: COVID-19 pneumonia

REACTIONS (5)
  - Pancreatitis [Recovering/Resolving]
  - Colonic fistula [Recovering/Resolving]
  - Colonic fistula [Recovering/Resolving]
  - Jaundice cholestatic [Recovering/Resolving]
  - Walled-off pancreatic necrosis [Recovering/Resolving]
